FAERS Safety Report 19960894 (Version 2)
Quarter: 2021Q4

REPORT INFORMATION
  Report Type: Report from Study
  Country: US (occurrence: US)
  Receive Date: 20211016
  Receipt Date: 20211125
  Transmission Date: 20220303
  Serious: Yes (Other)
  Sender: FDA-Public Use
  Company Number: US-TAKEDA-2021TUS063092

PATIENT
  Age: 57 Year
  Sex: Female

DRUGS (2)
  1. VON WILLEBRAND FACTOR HUMAN [Suspect]
     Active Substance: VON WILLEBRAND FACTOR HUMAN
     Indication: Product used for unknown indication
     Dosage: 5440 INTERNATIONAL UNIT
     Route: 065
  2. VON WILLEBRAND FACTOR HUMAN [Suspect]
     Active Substance: VON WILLEBRAND FACTOR HUMAN
     Dosage: 5360 INTERNATIONAL UNIT
     Route: 065

REACTIONS (3)
  - Epistaxis [Recovered/Resolved]
  - COVID-19 [Unknown]
  - Sinusitis [Unknown]

NARRATIVE: CASE EVENT DATE: 20211007
